FAERS Safety Report 7205635-9 (Version None)
Quarter: 2010Q4

REPORT INFORMATION
  Report Type: 
  Country: None (occurrence: None)
  Receive Date: 20101231
  Receipt Date: 20101222
  Transmission Date: 20110411
  Serious: Yes (Other)
  Sender: FDA-Public Use
  Company Number: US-PURDUE-USA-2010-0060877

PATIENT
  Sex: Female

DRUGS (2)
  1. OXYCONTIN [Suspect]
     Indication: INTERVERTEBRAL DISC DEGENERATION
     Dosage: 20 MG, BID
     Route: 048
     Dates: start: 20101121, end: 20101220
  2. OXYCONTIN [Suspect]
     Indication: PAIN

REACTIONS (8)
  - ABDOMINAL PAIN UPPER [None]
  - ARRHYTHMIA [None]
  - HEADACHE [None]
  - HYPERHIDROSIS [None]
  - INFLUENZA LIKE ILLNESS [None]
  - INSOMNIA [None]
  - PRURITUS [None]
  - PYREXIA [None]
